FAERS Safety Report 6983989-6 (Version None)
Quarter: 2010Q3

REPORT INFORMATION
  Report Type: 
  Country: None (occurrence: None)
  Receive Date: 20100915
  Receipt Date: 20090511
  Transmission Date: 20110219
  Serious: No
  Sender: FDA-Public Use
  Company Number: US-WYE-H09316409

PATIENT
  Sex: Female
  Weight: 124.85 kg

DRUGS (7)
  1. PRISTIQ [Suspect]
     Indication: DEPRESSION
     Route: 048
     Dates: start: 20090507
  2. GABAPENTIN [Concomitant]
  3. DICLOFENAC [Concomitant]
  4. TRAZODONE HCL [Concomitant]
  5. CLONAZEPAM [Concomitant]
  6. TRAMADOL [Concomitant]
  7. FOSAMAX PLUS D [Concomitant]

REACTIONS (1)
  - NIGHTMARE [None]
